FAERS Safety Report 25622358 (Version 1)
Quarter: 2025Q3

REPORT INFORMATION
  Report Type: Spontaneous
  Country: CN (occurrence: CN)
  Receive Date: 20250730
  Receipt Date: 20250730
  Transmission Date: 20251020
  Serious: Yes (Hospitalization)
  Sender: BEIGENE
  Company Number: CN-BEIGENE-BGN-2025-012198

PATIENT
  Age: 60 Year
  Weight: 49 kg

DRUGS (12)
  1. TISLELIZUMAB [Suspect]
     Active Substance: TISLELIZUMAB
     Indication: Nonkeratinising carcinoma of nasopharynx
  2. TISLELIZUMAB [Suspect]
     Active Substance: TISLELIZUMAB
     Route: 041
  3. TISLELIZUMAB [Suspect]
     Active Substance: TISLELIZUMAB
     Route: 041
  4. TISLELIZUMAB [Suspect]
     Active Substance: TISLELIZUMAB
  5. CAPECITABINE [Suspect]
     Active Substance: CAPECITABINE
     Indication: Nonkeratinising carcinoma of nasopharynx
  6. CAPECITABINE [Suspect]
     Active Substance: CAPECITABINE
     Route: 048
  7. CAPECITABINE [Suspect]
     Active Substance: CAPECITABINE
     Route: 048
  8. CAPECITABINE [Suspect]
     Active Substance: CAPECITABINE
  9. NIMOTUZUMAB [Suspect]
     Active Substance: NIMOTUZUMAB
     Indication: Nonkeratinising carcinoma of nasopharynx
  10. NIMOTUZUMAB [Suspect]
     Active Substance: NIMOTUZUMAB
     Route: 041
  11. NIMOTUZUMAB [Suspect]
     Active Substance: NIMOTUZUMAB
     Route: 041
  12. NIMOTUZUMAB [Suspect]
     Active Substance: NIMOTUZUMAB

REACTIONS (1)
  - Myelosuppression [Recovering/Resolving]
